FAERS Safety Report 7305473-2 (Version None)
Quarter: 2011Q1

REPORT INFORMATION
  Report Type: 
  Country: None (occurrence: None)
  Receive Date: 20110210
  Receipt Date: 20101115
  Transmission Date: 20110831
  Serious: Yes (Hospitalization)
  Sender: FDA-Public Use
  Company Number: 023135

PATIENT
  Sex: Female
  Weight: 62.5 kg

DRUGS (2)
  1. KEPPRA [Suspect]
     Indication: EPILEPSY
     Dosage: (1000 - 1500 MG TWICE DAULY ORAL) (2000 MG ORAL) (2250 MG, 1000MG-0-0-1250MG ORAL)
     Route: 048
  2. TRIMIPRAMINE MALEATE [Concomitant]

REACTIONS (17)
  - MEMORY IMPAIRMENT [None]
  - GINGIVAL SWELLING [None]
  - DEPRESSION [None]
  - SOMNOLENCE [None]
  - SPEECH DISORDER [None]
  - ASTHENIA [None]
  - BRADYPHRENIA [None]
  - TREMOR [None]
  - LOSS OF EMPLOYMENT [None]
  - IRRITABILITY [None]
  - ANXIETY [None]
  - HEADACHE [None]
  - FATIGUE [None]
  - DIPLOPIA [None]
  - DIZZINESS [None]
  - PALPITATIONS [None]
  - DISTURBANCE IN ATTENTION [None]
